FAERS Safety Report 7442216-6 (Version None)
Quarter: 2011Q2

REPORT INFORMATION
  Report Type: 
  Country: None (occurrence: None)
  Receive Date: 20110428
  Receipt Date: 20110419
  Transmission Date: 20111010
  Serious: Yes (Hospitalization)
  Sender: FDA-Public Use
  Company Number: CA-AMGEN-CANSP2010007141

PATIENT
  Age: 65 Year
  Sex: Female

DRUGS (7)
  1. COZARIL [Concomitant]
  2. HYDROTHIAZIDE [Concomitant]
  3. ENBREL [Suspect]
     Indication: RHEUMATOID ARTHRITIS
     Dosage: 50 MG, QWK
     Route: 058
     Dates: start: 20100929, end: 20101019
  4. PLAQUENIL [Concomitant]
     Dosage: 200 UNK, QD
     Route: 048
     Dates: start: 20080814
  5. METHOTREXATE [Suspect]
     Indication: RHEUMATOID ARTHRITIS
     Dosage: 25 UNK, QWK
     Route: 058
     Dates: start: 20080814
  6. FOLIC ACID [Concomitant]
     Dosage: 5 UNK, QD
     Route: 048
     Dates: start: 20080814
  7. SYNTHROID [Concomitant]

REACTIONS (3)
  - CYSTITIS [None]
  - PNEUMONIA [None]
  - DYSPNOEA [None]
